FAERS Safety Report 26158368 (Version 1)
Quarter: 2025Q4

REPORT INFORMATION
  Report Type: Spontaneous
  Country: US (occurrence: US)
  Receive Date: 20251215
  Receipt Date: 20251215
  Transmission Date: 20260118
  Serious: Yes (Death, Hospitalization)
  Sender: NOVARTIS
  Company Number: US-002147023-NVSC2025US190941

PATIENT
  Age: 73 Year
  Sex: Male

DRUGS (2)
  1. DABRAFENIB [Suspect]
     Active Substance: DABRAFENIB
     Indication: Papillary thyroid cancer
     Dosage: UNK
     Route: 065
  2. TRAMETINIB [Suspect]
     Active Substance: TRAMETINIB
     Indication: Papillary thyroid cancer
     Dosage: UNK
     Route: 065

REACTIONS (7)
  - Pneumonitis [Fatal]
  - Sarcomatoid carcinoma [Fatal]
  - Metastases to pleura [Fatal]
  - Metastases to diaphragm [Fatal]
  - Metastases to heart [Fatal]
  - Metastases to liver [Fatal]
  - Metastases to bone [Fatal]
